FAERS Safety Report 9932247 (Version 1)
Quarter: 2014Q1

REPORT INFORMATION
  Report Type: Report from Study
  Country: US (occurrence: US)
  Receive Date: 20140228
  Receipt Date: 20140228
  Transmission Date: 20141002
  Serious: No
  Sender: FDA-Public Use
  Company Number: US-ABBVIE-13P-163-1150018-00

PATIENT
  Sex: Male

DRUGS (2)
  1. ANDROGEL 1% [Suspect]
     Indication: BLOOD TESTOSTERONE DECREASED
     Dates: start: 2012, end: 201309
  2. ANDROGEL 1.62 % [Suspect]
     Indication: BLOOD TESTOSTERONE DECREASED
     Dates: start: 2012

REACTIONS (1)
  - Blood testosterone decreased [Unknown]
